FAERS Safety Report 11313376 (Version 1)
Quarter: 2015Q3

REPORT INFORMATION
  Report Type: Report from Study
  Country: CN (occurrence: CN)
  Receive Date: 20150727
  Receipt Date: 20150727
  Transmission Date: 20151125
  Serious: Yes (Other)
  Sender: FDA-Public Use
  Company Number: CN-BAXALTA-2015BAX031350

PATIENT
  Weight: 60 kg

DRUGS (2)
  1. OCTOCOG ALFA; BAXJECT UNSPECIFIED [Suspect]
     Active Substance: ANTIHEMOPHILIC FACTOR, HUMAN RECOMBINANT
     Indication: HAEMOPHILIA
     Dosage: 500-1000 IU, 3X A WEEK
     Route: 065
  2. OCTOCOG ALFA; BAXJECT UNSPECIFIED [Suspect]
     Active Substance: ANTIHEMOPHILIC FACTOR, HUMAN RECOMBINANT
     Indication: PROPHYLAXIS
     Dosage: 500 IU, 3X A WEEK
     Route: 042
     Dates: start: 2015

REACTIONS (3)
  - Haemarthrosis [Unknown]
  - Gingival bleeding [Recovered/Resolved]
  - Haemorrhage [Unknown]

NARRATIVE: CASE EVENT DATE: 2015
